FAERS Safety Report 26066817 (Version 2)
Quarter: 2025Q4

REPORT INFORMATION
  Report Type: Spontaneous
  Country: US (occurrence: US)
  Receive Date: 20251119
  Receipt Date: 20251218
  Transmission Date: 20260118
  Serious: No
  Sender: NOVO NORDISK
  Company Number: US-NOVOPROD-1564826

PATIENT
  Age: 71 Year
  Sex: Female

DRUGS (1)
  1. OZEMPIC [Suspect]
     Active Substance: SEMAGLUTIDE
     Indication: Weight control
     Dosage: UNK
     Dates: end: 2023

REACTIONS (2)
  - Weight increased [Unknown]
  - Off label use [Unknown]
